FAERS Safety Report 4939266-8 (Version None)
Quarter: 2006Q1

REPORT INFORMATION
  Report Type: 
  Country: None (occurrence: None)
  Receive Date: 20060309
  Receipt Date: 20060309
  Transmission Date: 20060701
  Serious: No
  Sender: FDA-Public Use
  Company Number: None

PATIENT
  Sex: Female

DRUGS (10)
  1. OXYCODONE  80    (NA) GENERIC [Suspect]
     Indication: PAIN
     Dosage: 80 MG  Q 8 HRS  PO
     Route: 048
     Dates: start: 20051201
  2. OXYCODONE  80    (NA) GENERIC [Suspect]
     Indication: PAIN
     Dosage: 80 MG  Q 8 HRS  PO
     Route: 048
     Dates: start: 20060101
  3. KC [Concomitant]
  4. PROTONIX [Concomitant]
  5. PAXIL [Concomitant]
  6. BUSPAR [Concomitant]
  7. FUROSEMIDE [Concomitant]
  8. PLAVIX [Concomitant]
  9. NORVASC [Concomitant]
  10. COREG [Concomitant]

REACTIONS (3)
  - DRUG EFFECT DECREASED [None]
  - NAUSEA [None]
  - PHARMACEUTICAL PRODUCT COMPLAINT [None]
